FAERS Safety Report 12235282 (Version 4)
Quarter: 2016Q2

REPORT INFORMATION
  Report Type: Spontaneous
  Country: JP (occurrence: JP)
  Receive Date: 20160404
  Receipt Date: 20160622
  Transmission Date: 20160815
  Serious: Yes (Life-Threatening, Disabling)
  Sender: FDA-Public Use
  Company Number: JP-B.I. PHARMACEUTICALS,INC./RIDGEFIELD-2016-BI-14775NB

PATIENT
  Age: 79 Year
  Sex: Female
  Weight: 52.1 kg

DRUGS (13)
  1. REMINYL [Concomitant]
     Active Substance: GALANTAMINE
     Indication: DEMENTIA
     Dosage: 8 MG
     Route: 048
     Dates: start: 20160217, end: 20160223
  2. GLACTIV [Concomitant]
     Active Substance: SITAGLIPTIN
     Indication: TYPE 2 DIABETES MELLITUS
     Dosage: 50 MG
     Route: 048
     Dates: start: 20160217, end: 20160228
  3. DEPAS [Concomitant]
     Active Substance: ETIZOLAM
     Indication: DEMENTIA
     Dosage: 0.5 MG
     Route: 048
     Dates: start: 20160217, end: 20160223
  4. TAKECAB [Concomitant]
     Active Substance: VONOPRAZAN FUMURATE
     Indication: PROPHYLAXIS
     Dosage: 10 MG
     Route: 048
     Dates: start: 20160224
  5. BAYASPIRIN [Concomitant]
     Active Substance: ASPIRIN
     Indication: CEREBRAL INFARCTION
     Route: 048
     Dates: start: 20160217, end: 20160223
  6. ARICEPT [Concomitant]
     Active Substance: DONEPEZIL HYDROCHLORIDE
     Indication: DEMENTIA
     Dosage: 5 MG
     Route: 048
     Dates: start: 20160217, end: 20160225
  7. EPADEL S [Concomitant]
     Active Substance: ICOSAPENT ETHYL
     Indication: CEREBRAL INFARCTION
     Dosage: 900 MG
     Route: 048
     Dates: start: 20160217, end: 20160223
  8. JARDIANCE [Suspect]
     Active Substance: EMPAGLIFLOZIN
     Indication: TYPE 2 DIABETES MELLITUS
     Dosage: 10 MG
     Route: 048
     Dates: start: 20160220, end: 20160224
  9. DIART [Concomitant]
     Active Substance: AZOSEMIDE
     Indication: CARDIAC FAILURE
     Dosage: 60 MG
     Route: 048
     Dates: start: 20160217, end: 20160226
  10. JANUVIA [Concomitant]
     Active Substance: SITAGLIPTIN PHOSPHATE
     Indication: TYPE 2 DIABETES MELLITUS
     Dosage: 50 MG
     Route: 048
     Dates: start: 20160224, end: 20160225
  11. TAKEPRON [Concomitant]
     Active Substance: LANSOPRAZOLE
     Indication: PROPHYLAXIS
     Dosage: 15 MG
     Route: 048
     Dates: start: 20160217, end: 20160223
  12. EPADEL S [Concomitant]
     Active Substance: ICOSAPENT ETHYL
     Route: 048
     Dates: start: 20160224, end: 20160225
  13. TSUMURA ORENGEDOKUTO EXTRACT GRANULES FOR ETHICAL USE [Concomitant]
     Indication: CEREBRAL INFARCTION
     Dosage: 7.5 G
     Route: 048
     Dates: start: 20160224

REACTIONS (3)
  - Hypernatraemia [Recovered/Resolved]
  - Depressed level of consciousness [Recovered/Resolved with Sequelae]
  - Dehydration [Recovered/Resolved]

NARRATIVE: CASE EVENT DATE: 20160224
